FAERS Safety Report 5644689-8 (Version None)
Quarter: 2008Q1

REPORT INFORMATION
  Report Type: 
  Country: None (occurrence: None)
  Receive Date: 20080229
  Receipt Date: 20070525
  Transmission Date: 20080703
  Serious: No
  Sender: FDA-Public Use
  Company Number: A0653120A

PATIENT
  Sex: Male

DRUGS (1)
  1. VALTREX [Suspect]
     Dosage: 1G THREE TIMES PER DAY
     Dates: start: 20070524

REACTIONS (4)
  - DRUG EXPOSURE VIA BREAST MILK [None]
  - HYPERSOMNIA [None]
  - POOR QUALITY SLEEP [None]
  - TEETHING [None]
